FAERS Safety Report 4504272-4 (Version None)
Quarter: 2004Q4

REPORT INFORMATION
  Report Type: 
  Country: None (occurrence: None)
  Receive Date: 20041117
  Receipt Date: 20041117
  Transmission Date: 20050328
  Serious: No
  Sender: FDA-Public Use
  Company Number: None

PATIENT
  Age: 82 Year
  Sex: Female
  Weight: 58.514 kg

DRUGS (4)
  1. ATIVAN [Suspect]
     Indication: ANXIETY
     Dosage: 1 MG PO TID
     Route: 048
     Dates: start: 20041115
  2. BENTYL [Concomitant]
  3. ZANTAC [Concomitant]
  4. PERCOCET [Concomitant]

REACTIONS (4)
  - DIZZINESS [None]
  - MALAISE [None]
  - PHARMACEUTICAL PRODUCT COMPLAINT [None]
  - VISION BLURRED [None]
